FAERS Safety Report 9178995 (Version 3)
Quarter: 2013Q2

REPORT INFORMATION
  Report Type: Report from Study
  Country: DE (occurrence: DE)
  Receive Date: 20130321
  Receipt Date: 20130604
  Transmission Date: 20140414
  Serious: Yes (Hospitalization)
  Sender: FDA-Public Use
  Company Number: DE-BRISTOL-MYERS SQUIBB COMPANY-18698340

PATIENT
  Age: 74 Year
  Sex: Male
  Weight: 74 kg

DRUGS (6)
  1. ERBITUX SOLN FOR INF [Suspect]
     Indication: COLORECTAL CANCER METASTATIC
     Dosage: 7NV12-7NV12?250MG.M2 IS ALSO TKN 14NV12-5MAR13 1 IN 1 WK
     Route: 042
     Dates: start: 20121107, end: 20130305
  2. FLUOROURACIL [Concomitant]
     Indication: COLORECTAL CANCER METASTATIC
     Route: 042
     Dates: start: 20121107, end: 20130305
  3. FOLINIC ACID [Concomitant]
     Indication: COLORECTAL CANCER METASTATIC
     Route: 042
     Dates: start: 20121107, end: 20130305
  4. IRINOTECAN [Concomitant]
     Indication: COLORECTAL CANCER METASTATIC
     Route: 042
     Dates: start: 20121107, end: 20130305
  5. ANTIHISTAMINE DRUGS [Concomitant]
     Indication: PREMEDICATION
     Route: 042
     Dates: start: 20121107, end: 20121115
  6. CORTICOSTEROID [Concomitant]
     Indication: PREMEDICATION
     Dates: start: 20121107, end: 20121115

REACTIONS (1)
  - Large intestine perforation [Recovered/Resolved with Sequelae]
